FAERS Safety Report 4505406-8 (Version None)
Quarter: 2004Q4

REPORT INFORMATION
  Report Type: 
  Country: None (occurrence: None)
  Receive Date: 20041118
  Receipt Date: 20041118
  Transmission Date: 20050328
  Serious: Yes (Life-Threatening, Hospitalization)
  Sender: FDA-Public Use
  Company Number: None

PATIENT
  Age: 43 Year
  Sex: Female
  Weight: 52.3 kg

DRUGS (12)
  1. GEMZAR [Suspect]
     Indication: PANCREATIC CARCINOMA
     Dosage: 1000 MG/M2  Q O WEEK INTRAVENOUS
     Route: 042
     Dates: start: 20031120, end: 20040402
  2. DURAGESIC [Concomitant]
  3. NEXIUM [Concomitant]
  4. MS CONTIN [Concomitant]
  5. REGLAN [Concomitant]
  6. MULTI-VITAMIN [Concomitant]
  7. ATIVAN [Concomitant]
  8. ZINC [Concomitant]
  9. REMERON [Concomitant]
  10. DOCUSATE [Concomitant]
  11. LIPRAM [Concomitant]
  12. HOME MEDS [Concomitant]

REACTIONS (1)
  - HAEMOLYTIC URAEMIC SYNDROME [None]
